FAERS Safety Report 23395507 (Version 6)
Quarter: 2025Q1

REPORT INFORMATION
  Report Type: Report from Study
  Country: US (occurrence: US)
  Receive Date: 20240112
  Receipt Date: 20250130
  Transmission Date: 20250409
  Serious: Yes (Other)
  Sender: TAKEDA
  Company Number: US-TAKEDA-US202020546

PATIENT
  Age: 73 Year
  Sex: Female
  Weight: 62 kg

DRUGS (33)
  1. HUMAN IMMUNOGLOBULIN G [Suspect]
     Active Substance: HUMAN IMMUNOGLOBULIN G
     Indication: Immunodeficiency common variable
     Dosage: 13 GRAM, 1/WEEK
     Dates: start: 20160127
  2. HUMAN IMMUNOGLOBULIN G [Suspect]
     Active Substance: HUMAN IMMUNOGLOBULIN G
     Indication: Primary immunodeficiency syndrome
     Dosage: 13 GRAM, 1/WEEK
     Dates: start: 20160203
  3. HUMAN IMMUNOGLOBULIN G [Suspect]
     Active Substance: HUMAN IMMUNOGLOBULIN G
     Indication: Congenital hypogammaglobulinaemia
     Dosage: 10 GRAM, 1/WEEK
     Dates: start: 20191231
  4. HUMAN IMMUNOGLOBULIN G [Suspect]
     Active Substance: HUMAN IMMUNOGLOBULIN G
     Dosage: 13 GRAM, 1/WEEK
     Dates: start: 20210801
  5. HUMAN IMMUNOGLOBULIN G [Suspect]
     Active Substance: HUMAN IMMUNOGLOBULIN G
  6. HUMAN IMMUNOGLOBULIN G [Suspect]
     Active Substance: HUMAN IMMUNOGLOBULIN G
     Dosage: 13 GRAM, 1/WEEK
  7. HUMAN IMMUNOGLOBULIN G [Suspect]
     Active Substance: HUMAN IMMUNOGLOBULIN G
     Dosage: 13 GRAM, 1/WEEK
  8. ACETAMINOPHEN [Concomitant]
     Active Substance: ACETAMINOPHEN
  9. DIPHENHYDRAMINE [Concomitant]
     Active Substance: DIPHENHYDRAMINE
  10. EPINEPHRINE [Concomitant]
     Active Substance: EPINEPHRINE
  11. FOLIC ACID [Concomitant]
     Active Substance: FOLIC ACID
  12. ACYCLOVIR [Concomitant]
     Active Substance: ACYCLOVIR
  13. SULFASALAZINE [Concomitant]
     Active Substance: SULFASALAZINE
  14. CELEBREX [Concomitant]
     Active Substance: CELECOXIB
  15. EVOXAC [Concomitant]
     Active Substance: CEVIMELINE HYDROCHLORIDE
  16. ASPIRIN [Concomitant]
     Active Substance: ASPIRIN
  17. PREDNISONE [Concomitant]
     Active Substance: PREDNISONE
  18. NALTREXONE HYDROCHLORIDE [Concomitant]
     Active Substance: NALTREXONE HYDROCHLORIDE
  19. GLUTATHIONE [Concomitant]
     Active Substance: GLUTATHIONE
  20. NEXIUM [Concomitant]
     Active Substance: ESOMEPRAZOLE MAGNESIUM
  21. OPTIMARK [Concomitant]
     Active Substance: GADOVERSETAMIDE
  22. VALACYCLOVIR HYDROCHLORIDE [Concomitant]
     Active Substance: VALACYCLOVIR HYDROCHLORIDE
  23. ACETYLCYSTEINE [Concomitant]
     Active Substance: ACETYLCYSTEINE
  24. COENZYME Q10 [Concomitant]
     Active Substance: DIETARY SUPPLEMENT\UBIDECARENONE
  25. ALPHA LIPOIC ACID [Concomitant]
     Active Substance: .ALPHA.-LIPOIC ACID
  26. DIETARY SUPPLEMENT [Concomitant]
     Active Substance: DIETARY SUPPLEMENT
  27. CALCIUM + MAGNESIUM + ZINK [Concomitant]
  28. BANOPHEN [Concomitant]
     Active Substance: DIPHENHYDRAMINE HYDROCHLORIDE
  29. SACCHAROMYCES CEREVISIAE [Concomitant]
     Active Substance: SACCHAROMYCES CEREVISIAE
  30. DIPHENHYDRAMINE HYDROCHLORIDE [Concomitant]
     Active Substance: DIPHENHYDRAMINE HYDROCHLORIDE
  31. ZYRTEC [Concomitant]
     Active Substance: CETIRIZINE HYDROCHLORIDE
  32. CROMOLYN SODIUM [Concomitant]
     Active Substance: CROMOLYN SODIUM
  33. COQ [Concomitant]

REACTIONS (18)
  - Mast cell activation syndrome [Unknown]
  - Autoimmune eye disorder [Unknown]
  - Chronic fatigue syndrome [Unknown]
  - Antibody test abnormal [Unknown]
  - Multiple allergies [Unknown]
  - Post-acute COVID-19 syndrome [Unknown]
  - Viral infection [Not Recovered/Not Resolved]
  - Pharyngitis [Unknown]
  - Liquid product physical issue [Unknown]
  - Product contamination physical [Unknown]
  - Product storage error [Unknown]
  - Product dose omission issue [Unknown]
  - Fall [Unknown]
  - Rib fracture [Unknown]
  - Thyroid disorder [Unknown]
  - Infusion site swelling [Unknown]
  - Dyspnoea [Unknown]
  - Fatigue [Unknown]

NARRATIVE: CASE EVENT DATE: 20221101
